FAERS Safety Report 12232527 (Version 5)
Quarter: 2016Q2

REPORT INFORMATION
  Report Type: Report from Study
  Country: US (occurrence: US)
  Receive Date: 20160401
  Receipt Date: 20160510
  Transmission Date: 20160815
  Serious: No
  Sender: FDA-Public Use
  Company Number: US-AMGEN-USASL2016038051

PATIENT
  Age: 51 Year
  Sex: Female

DRUGS (2)
  1. ENBREL [Suspect]
     Active Substance: ETANERCEPT
     Indication: PSORIATIC ARTHROPATHY
     Dosage: 50 MG, WEEKLY
     Route: 065
     Dates: start: 20160316
  2. ENBREL [Suspect]
     Active Substance: ETANERCEPT
     Dosage: UNK
     Route: 065

REACTIONS (15)
  - Feeling abnormal [Unknown]
  - Cough [Unknown]
  - Respiratory symptom [Unknown]
  - Injection site pain [Unknown]
  - Night sweats [Unknown]
  - Headache [Recovered/Resolved]
  - Pollakiuria [Recovered/Resolved]
  - Dysphonia [Unknown]
  - Limb discomfort [Unknown]
  - No therapeutic response [Unknown]
  - Decreased appetite [Recovered/Resolved]
  - Diarrhoea [Unknown]
  - Herpes zoster [Recovering/Resolving]
  - Renal pain [Recovered/Resolved]
  - Nausea [Unknown]

NARRATIVE: CASE EVENT DATE: 2016
